FAERS Safety Report 8761927 (Version 4)
Quarter: 2012Q4

REPORT INFORMATION
  Report Type: 
  Country: DE (occurrence: DE)
  Receive Date: 20120830
  Receipt Date: 20121008
  Transmission Date: 20130627
  Serious: Yes (Other)
  Sender: FDA-Public Use
  Company Number: CHPA2012DE019055

PATIENT
  Age: 79 Year
  Sex: Female
  Weight: 67 kg

DRUGS (6)
  1. LAMISIL [Suspect]
     Indication: FUNGAL INFECTION
     Dosage: 1 DF, ONCE/SINGLE
     Route: 061
     Dates: start: 20120806, end: 20120806
  2. CODIOVAN [Concomitant]
     Dosage: 160 UNK, QD, For 3 years
  3. DIOVANE [Concomitant]
     Dosage: 160 UNK, QD, For 3 years
  4. AMLODIPINE [Concomitant]
     Dosage: 2 DF, UNK
  5. NEBILET [Concomitant]
     Dosage: 1 DF, QD
  6. L-THYROXINE [Concomitant]
     Dosage: 1 DF, QD

REACTIONS (5)
  - Dermatitis allergic [Recovered/Resolved]
  - Papule [Recovered/Resolved]
  - Pruritus generalised [Recovered/Resolved]
  - Rash [Recovered/Resolved]
  - Skin exfoliation [Recovered/Resolved]
